FAERS Safety Report 9741326 (Version 4)
Quarter: 2014Q1

REPORT INFORMATION
  Report Type: Report from Study
  Country: HU (occurrence: HU)
  Receive Date: 20131209
  Receipt Date: 20140121
  Transmission Date: 20141002
  Serious: Yes (Hospitalization)
  Sender: FDA-Public Use
  Company Number: HU-ASTRAZENECA-2013SE87404

PATIENT
  Age: 29523 Day
  Sex: Male

DRUGS (7)
  1. AZD6140 [Suspect]
     Indication: CORONARY ARTERY DISEASE
     Route: 048
     Dates: start: 20110426, end: 20130829
  2. AZD6140 [Suspect]
     Indication: CORONARY ARTERY DISEASE
     Route: 048
     Dates: start: 20130909, end: 20131121
  3. OMNIC TOCAS [Concomitant]
     Indication: BENIGN PROSTATIC HYPERPLASIA
     Route: 048
     Dates: start: 20130910
  4. METOPROLOL [Concomitant]
     Indication: CORONARY ARTERY DISEASE
     Route: 048
     Dates: start: 20110426
  5. PORTIRON [Concomitant]
     Indication: HYPERTENSION
     Route: 048
     Dates: start: 20111214
  6. D3 VITAMIN [Concomitant]
     Indication: OSTEOPOROSIS
     Route: 048
  7. ASA [Concomitant]
     Route: 048
     Dates: end: 20131121

REACTIONS (1)
  - Diverticulum intestinal haemorrhagic [Recovered/Resolved]
